FAERS Safety Report 8120677-7 (Version None)
Quarter: 2012Q1

REPORT INFORMATION
  Report Type: 
  Country: None (occurrence: None)
  Receive Date: 20120207
  Receipt Date: 20120131
  Transmission Date: 20120608
  Serious: Yes (Other)
  Sender: FDA-Public Use
  Company Number: BR-ROCHE-699173

PATIENT
  Sex: Female
  Weight: 76 kg

DRUGS (15)
  1. MABTHERA [Suspect]
     Route: 042
     Dates: start: 20100927, end: 20101201
  2. LEVOTHYROXINE SODIUM [Concomitant]
     Indication: THYROID DISORDER
  3. PHENERGAN [Concomitant]
     Indication: PREMEDICATION
  4. MABTHERA [Suspect]
     Dosage: FOURTH CYCLE
     Route: 042
  5. GLUCOSAMINE SULFATE [Concomitant]
     Dosage: DRUG REPORTED AS: GLYCOSAMIDE SULFATE
  6. AMOXICILLIN [Concomitant]
  7. ETORICOXIB [Suspect]
     Indication: PRODUCT USED FOR UNKNOWN INDICATION
     Route: 065
  8. MABTHERA [Suspect]
     Indication: RHEUMATOID ARTHRITIS
     Dosage: FORM: INFUSION
     Route: 042
  9. MABTHERA [Suspect]
     Dosage: ROUTE: INTRAVENOUS; DOSE: 1000 MG/ML
     Route: 042
     Dates: start: 20090801, end: 20090816
  10. MELOXICAM [Concomitant]
  11. LEVOTHYROXINE SODIUM [Concomitant]
  12. IVERMECTIN [Concomitant]
  13. ACETAMINOPHEN [Concomitant]
     Dosage: FREQUENCY: EVERY 8TH
  14. NIMESULIDE [Concomitant]
  15. KETOPROFEN [Concomitant]

REACTIONS (31)
  - PHARYNGITIS [None]
  - SWELLING [None]
  - BLOOD TRIGLYCERIDES INCREASED [None]
  - GAIT DISTURBANCE [None]
  - DYSGEUSIA [None]
  - DYSPHONIA [None]
  - BACK PAIN [None]
  - STOMATITIS [None]
  - PAIN IN EXTREMITY [None]
  - DRUG INEFFECTIVE [None]
  - MOUTH INJURY [None]
  - JOINT SWELLING [None]
  - NAUSEA [None]
  - BLOOD CHOLESTEROL INCREASED [None]
  - SINUSITIS [None]
  - FACE INJURY [None]
  - DYSPEPSIA [None]
  - PAIN [None]
  - OEDEMA PERIPHERAL [None]
  - DRUG INTOLERANCE [None]
  - ABDOMINAL PAIN UPPER [None]
  - FEELING HOT [None]
  - WEIGHT INCREASED [None]
  - RHEUMATOID ARTHRITIS [None]
  - MALAISE [None]
  - WEIGHT DECREASED [None]
  - ARTHRALGIA [None]
  - HEPATIC PAIN [None]
  - CARTILAGE INJURY [None]
  - SOMNOLENCE [None]
  - HAND DEFORMITY [None]
